FAERS Safety Report 7417103-X (Version None)
Quarter: 2011Q2

REPORT INFORMATION
  Report Type: 
  Country: None (occurrence: None)
  Receive Date: 20110415
  Receipt Date: 20110406
  Transmission Date: 20111010
  Serious: Yes (Hospitalization, Other)
  Sender: FDA-Public Use
  Company Number: JP-B.I. PHARMACEUTICALS,INC./RIDGEFIELD-2010-DE-07008GD

PATIENT
  Sex: Female
  Weight: 53 kg

DRUGS (10)
  1. MELOXICAM [Suspect]
     Indication: OSTEOARTHRITIS
     Dosage: 10 MG
     Route: 048
     Dates: start: 20081027, end: 20100304
  2. CARBON DIOXIDE [Concomitant]
     Route: 065
  3. SELBEX [Concomitant]
     Dosage: 150 MG
     Route: 048
  4. SEREVENT [Concomitant]
     Dosage: 1 PUF
     Route: 055
  5. SIGMART [Concomitant]
     Dosage: 15 MG
     Route: 048
  6. EBASTEL OD [Concomitant]
     Dosage: 10 MG
     Route: 048
  7. FLUTIDE [Concomitant]
     Dosage: 1 PUF
     Route: 055
  8. LIPITOR [Concomitant]
     Dosage: 10 MG
     Route: 048
  9. SEPAMIT [Concomitant]
     Dosage: 30 MG
     Route: 048
  10. ITOROL [Concomitant]
     Dosage: 40 MG
     Route: 048

REACTIONS (6)
  - SMALL INTESTINE ULCER [None]
  - HAEMATOCHEZIA [None]
  - GASTRITIS EROSIVE [None]
  - ILEAL ULCER [None]
  - ANAEMIA [None]
  - SMALL INTESTINAL HAEMORRHAGE [None]
